FAERS Safety Report 21167971 (Version 1)
Quarter: 2022Q3

REPORT INFORMATION
  Report Type: Spontaneous
  Country: CN (occurrence: None)
  Receive Date: 20220803
  Receipt Date: 20220803
  Transmission Date: 20221027
  Serious: Yes (Other)
  Sender: FDA-Public Use
  Company Number: 2022A271015

PATIENT
  Age: 29397 Day
  Sex: Male
  Weight: 65 kg

DRUGS (6)
  1. OSIMERTINIB MESYLATE [Suspect]
     Active Substance: OSIMERTINIB MESYLATE
     Indication: Adenocarcinoma
     Route: 048
     Dates: start: 20211101, end: 20220713
  2. OSIMERTINIB MESYLATE [Suspect]
     Active Substance: OSIMERTINIB MESYLATE
     Indication: Neoplasm
     Route: 048
     Dates: start: 20211101, end: 20220713
  3. ENDOSTATIN [Concomitant]
     Active Substance: ENDOSTATIN
     Indication: Therapeutic procedure
     Route: 065
     Dates: start: 20211104
  4. CISPLATIN [Concomitant]
     Active Substance: CISPLATIN
     Indication: Therapeutic procedure
     Route: 065
     Dates: start: 20211104
  5. CATEQUENTINIB [Concomitant]
     Active Substance: CATEQUENTINIB
     Indication: Neoplasm
     Route: 065
     Dates: start: 20220520
  6. AUMOLERTINIB [Concomitant]
     Active Substance: AUMOLERTINIB
     Route: 065

REACTIONS (6)
  - Benign prostatic hyperplasia [Unknown]
  - Myelosuppression [Unknown]
  - Platelet count decreased [Recovering/Resolving]
  - Pleural effusion [Unknown]
  - Atelectasis [Unknown]
  - Pulmonary mass [Unknown]

NARRATIVE: CASE EVENT DATE: 20220708
